FAERS Safety Report 7475659-5 (Version None)
Quarter: 2011Q2

REPORT INFORMATION
  Report Type: 
  Country: None (occurrence: None)
  Receive Date: 20110512
  Receipt Date: 20110509
  Transmission Date: 20111010
  Serious: Yes (Hospitalization)
  Sender: FDA-Public Use
  Company Number: FR-ROCHE-776177

PATIENT
  Sex: Male

DRUGS (2)
  1. CELLCEPT [Suspect]
     Route: 048
     Dates: start: 20070101, end: 20100501
  2. RITUXAN [Suspect]
     Indication: DERMATOMYOSITIS
     Route: 042
     Dates: start: 20100501, end: 20100601

REACTIONS (2)
  - LEFT VENTRICULAR FAILURE [None]
  - CONGESTIVE CARDIOMYOPATHY [None]
